FAERS Safety Report 8305503-5 (Version None)
Quarter: 2012Q2

REPORT INFORMATION
  Report Type: 
  Country: None (occurrence: None)
  Receive Date: 20120423
  Receipt Date: 20120413
  Transmission Date: 20120825
  Serious: Yes (Hospitalization)
  Sender: FDA-Public Use
  Company Number: JP-GLAXOSMITHKLINE-B0585646A

PATIENT
  Sex: Female
  Weight: 54 kg

DRUGS (15)
  1. XELODA [Suspect]
     Dosage: 1800MG PER DAY
     Route: 048
     Dates: start: 20100426, end: 20100531
  2. TYKERB [Suspect]
     Dosage: 1000MG PER DAY
     Route: 048
     Dates: start: 20090728, end: 20090809
  3. TYKERB [Suspect]
     Dosage: 1000MG PER DAY
     Route: 048
     Dates: start: 20090818, end: 20091130
  4. TYKERB [Suspect]
     Dosage: 1250MG PER DAY
     Route: 048
     Dates: start: 20091201
  5. BETAMETHASONE [Concomitant]
     Indication: BRAIN OEDEMA
     Route: 048
     Dates: start: 20091225
  6. XELODA [Suspect]
     Dosage: 2400MG PER DAY
     Route: 048
     Dates: start: 20090907, end: 20090921
  7. XELODA [Suspect]
     Dosage: 2400MG PER DAY
     Route: 048
     Dates: start: 20090922, end: 20091221
  8. LEBENIN [Concomitant]
     Indication: PROPHYLAXIS AGAINST DIARRHOEA
     Route: 048
  9. TYKERB [Suspect]
     Indication: BREAST CANCER
     Dosage: 1250MG PER DAY
     Route: 048
     Dates: start: 20090620, end: 20090624
  10. XELODA [Suspect]
     Dosage: 2400MG PER DAY
     Route: 048
     Dates: start: 20090803, end: 20090817
  11. XELODA [Suspect]
     Dosage: 1800MG PER DAY
     Route: 048
     Dates: start: 20091228, end: 20100201
  12. TYKERB [Suspect]
     Dosage: 750MG PER DAY
     Route: 048
     Dates: start: 20090708, end: 20090727
  13. TYKERB [Suspect]
     Dosage: 1250MG PER DAY
     Route: 048
     Dates: start: 20090810, end: 20090817
  14. XELODA [Suspect]
     Dosage: 3000MG PER DAY
     Route: 048
     Dates: start: 20090620, end: 20090625
  15. TANNALBIN [Concomitant]
     Indication: PROPHYLAXIS AGAINST DIARRHOEA
     Route: 048

REACTIONS (4)
  - DIARRHOEA [None]
  - STOMATITIS [None]
  - PARONYCHIA [None]
  - DERMATITIS [None]
